FAERS Safety Report 5560221-1 (Version None)
Quarter: 2007Q4

REPORT INFORMATION
  Report Type: 
  Country: None (occurrence: None)
  Receive Date: 20071214
  Receipt Date: 20071029
  Transmission Date: 20080405
  Serious: No
  Sender: FDA-Public Use
  Company Number: US-ABBOTT-07P-163-0422883-00

PATIENT
  Sex: Male
  Weight: 65.83 kg

DRUGS (12)
  1. HUMIRA [Suspect]
     Indication: CROHN'S DISEASE
     Route: 058
     Dates: start: 20071026
  2. ALENDRONATE SODIUM [Concomitant]
     Indication: OSTEOPOROSIS
     Route: 048
  3. METHOTREXATE [Concomitant]
     Indication: CROHN'S DISEASE
     Route: 048
  4. PREDNISONE [Concomitant]
     Indication: CROHN'S DISEASE
     Route: 048
  5. MULTI-VITAMIN [Concomitant]
     Indication: VITAMIN SUPPLEMENTATION
     Route: 048
  6. CALCIUM [Concomitant]
     Indication: VITAMIN SUPPLEMENTATION
     Route: 048
  7. FOLIC ACID [Concomitant]
     Indication: MEDICAL DIET
     Route: 048
  8. PRAMOCAINE HYDROCHLORIDE [Concomitant]
     Indication: HAEMORRHOIDS
     Route: 061
  9. OMEPRAZOLE [Concomitant]
     Indication: DYSPEPSIA
     Route: 048
  10. TRAMADOL HCL [Concomitant]
     Indication: PAIN
     Route: 048
  11. BENZOYL PEROXIDE [Concomitant]
     Indication: FURUNCLE
     Route: 061
  12. CLINDAMYCIN 1% [Concomitant]
     Indication: PROPHYLAXIS
     Route: 061

REACTIONS (1)
  - ACCIDENTAL EXPOSURE [None]
